FAERS Safety Report 5161789-X (Version None)
Quarter: 2006Q4

REPORT INFORMATION
  Report Type: 
  Country: None (occurrence: None)
  Receive Date: 20061130
  Receipt Date: 20061102
  Transmission Date: 20070319
  Serious: Yes (Hospitalization)
  Sender: FDA-Public Use
  Company Number: JP-ABBOTT-06P-087-0349399-00

PATIENT
  Sex: Male
  Weight: 70 kg

DRUGS (3)
  1. KLARICID [Suspect]
     Indication: NASOPHARYNGITIS
     Route: 048
     Dates: start: 20060926, end: 20060928
  2. ACETAMINOPHEN [Concomitant]
     Indication: NASOPHARYNGITIS
     Route: 048
     Dates: start: 20060926, end: 20060928
  3. MEQUITAZINE [Concomitant]
     Indication: NASOPHARYNGITIS
     Route: 048
     Dates: start: 20060926, end: 20060928

REACTIONS (6)
  - BACK PAIN [None]
  - HAEMODIALYSIS [None]
  - MALAISE [None]
  - NAUSEA [None]
  - NEPHRITIS INTERSTITIAL [None]
  - RENAL FAILURE ACUTE [None]
